FAERS Safety Report 6842533-4 (Version None)
Quarter: 2010Q3

REPORT INFORMATION
  Report Type: 
  Country: None (occurrence: None)
  Receive Date: 20100714
  Receipt Date: 20070730
  Transmission Date: 20110219
  Serious: No
  Sender: FDA-Public Use
  Company Number: US-PFIZER INC-2007064772

PATIENT
  Sex: Female
  Weight: 72.7 kg

DRUGS (3)
  1. CHANTIX [Suspect]
     Indication: SMOKING CESSATION THERAPY
     Dates: start: 20070725
  2. NORVASC [Concomitant]
     Indication: HYPERTENSION
  3. ALTACE [Concomitant]
     Indication: HYPERTENSION

REACTIONS (2)
  - CONSTIPATION [None]
  - PAIN [None]
